FAERS Safety Report 22531408 (Version 2)
Quarter: 2023Q4

REPORT INFORMATION
  Report Type: Spontaneous
  Country: US (occurrence: US)
  Receive Date: 20230607
  Receipt Date: 20231227
  Transmission Date: 20240110
  Serious: No
  Sender: FDA-Public Use
  Company Number: US-PFIZER INC-PV202300094104

PATIENT
  Age: 44 Year
  Sex: Female

DRUGS (2)
  1. BRAFTOVI [Suspect]
     Active Substance: ENCORAFENIB
     Dosage: TAKE 6 CAPSULES (450 MG TOTAL) BY MOUTH DAILY. MAY BE TAKEN WITH OR WITHOUT FOOD. SWALLOW CAPSULE WH
     Route: 048
  2. MEKTOVI [Suspect]
     Active Substance: BINIMETINIB
     Dosage: 45 MG

REACTIONS (1)
  - Malaise [Unknown]
